FAERS Safety Report 9958391 (Version 2)
Quarter: 2014Q2

REPORT INFORMATION
  Report Type: Spontaneous
  Country: US (occurrence: US)
  Receive Date: 20140305
  Receipt Date: 20140408
  Transmission Date: 20141212
  Serious: Yes (Other)
  Sender: FDA-Public Use
  Company Number: US-ROCHE-1359716

PATIENT
  Sex: Female
  Weight: 110.32 kg

DRUGS (5)
  1. XOLAIR [Suspect]
     Indication: ASTHMA
     Route: 058
     Dates: start: 20140301
  2. ZYRTEC [Concomitant]
     Route: 065
  3. LEVALBUTEROL HYDROCHLORIDE [Concomitant]
     Dosage: 1.25MG/3ML
     Route: 065
  4. ALBUTEROL SULFATE [Concomitant]
  5. DULERA [Concomitant]
     Route: 065
     Dates: start: 20140104

REACTIONS (3)
  - Loss of consciousness [Unknown]
  - Decreased appetite [Unknown]
  - Somnolence [Unknown]
